FAERS Safety Report 8304732-4 (Version None)
Quarter: 2012Q2

REPORT INFORMATION
  Report Type: 
  Country: None (occurrence: None)
  Receive Date: 20120423
  Receipt Date: 20120410
  Transmission Date: 20120825
  Serious: Yes (Other)
  Sender: FDA-Public Use
  Company Number: US-ROCHE-1053423

PATIENT
  Sex: Female
  Weight: 60.836 kg

DRUGS (17)
  1. LEVOXYL [Concomitant]
  2. HERCEPTIN [Suspect]
     Indication: BREAST CANCER
     Route: 042
     Dates: start: 20120302
  3. FISH OIL [Concomitant]
  4. LOSARTAN POTASSIUM AND HYDROCHLOROTHIAZIDE [Concomitant]
     Indication: HYPERTENSION
     Dates: end: 20120316
  5. CALCIUM CARBONATE [Concomitant]
  6. SENNA [Concomitant]
     Indication: CONSTIPATION
  7. CRESTOR [Concomitant]
  8. HYDROCODONE BITARTRATE AND ACETAMINOPHEN [Concomitant]
  9. OMEPRAZOLE [Concomitant]
  10. DOCETAXEL [Suspect]
     Indication: PRODUCT USED FOR UNKNOWN INDICATION
     Dates: start: 20120302
  11. NEULASTA [Suspect]
     Indication: PRODUCT USED FOR UNKNOWN INDICATION
     Dates: start: 20120302
  12. AMBIEN [Concomitant]
     Route: 048
  13. ASPIRIN [Concomitant]
  14. EMLA [Concomitant]
     Route: 061
  15. TRIAMCINOLONE ACETONIDE [Concomitant]
     Route: 061
  16. PACLITAXEL [Concomitant]
     Dates: start: 20120413
  17. CARBOPLATIN [Concomitant]

REACTIONS (8)
  - DERMATITIS [None]
  - ARTHRALGIA [None]
  - WEIGHT DECREASED [None]
  - WEIGHT INCREASED [None]
  - DYSGEUSIA [None]
  - PALMAR-PLANTAR ERYTHRODYSAESTHESIA SYNDROME [None]
  - BLOOD PRESSURE DECREASED [None]
  - DECREASED APPETITE [None]
